FAERS Safety Report 16564048 (Version 1)
Quarter: 2019Q3

REPORT INFORMATION
  Report Type: Spontaneous
  Country: US (occurrence: US)
  Receive Date: 20190530
  Receipt Date: 20190530
  Transmission Date: 20191004
  Serious: Yes (Life-Threatening, Other)
  Sender: FDA-Public Use
  Company Number: None

PATIENT
  Age: 87 Year
  Sex: Female
  Weight: 71.67 kg

DRUGS (1)
  1. IBRANCE [Suspect]
     Active Substance: PALBOCICLIB
     Indication: BREAST CANCER FEMALE
     Dosage: 1 CAP DAILY FOR 21 DAYS ON /7 DAYS OFF PO
     Route: 048
     Dates: start: 20181201

REACTIONS (2)
  - Haemoglobin decreased [None]
  - Bone pain [None]

NARRATIVE: CASE EVENT DATE: 20190530
